FAERS Safety Report 17492991 (Version 1)
Quarter: 2020Q1

REPORT INFORMATION
  Report Type: Spontaneous
  Country: FR (occurrence: FR)
  Receive Date: 20200304
  Receipt Date: 20200304
  Transmission Date: 20200409
  Serious: Yes (Other)
  Sender: FDA-Public Use
  Company Number: FR-GLAXOSMITHKLINE-FR2020035455

PATIENT
  Age: 90 Year
  Sex: Female
  Weight: 70 kg

DRUGS (5)
  1. AUGMENTIN [Concomitant]
     Active Substance: AMOXICILLIN\CLAVULANATE POTASSIUM
     Indication: WOUND INFECTION
     Dosage: 2 G, QD
     Route: 048
     Dates: start: 20200121
  2. LEVOTHYROX [Concomitant]
     Active Substance: LEVOTHYROXINE
     Indication: POST PROCEDURAL HYPOTHYROIDISM
     Dosage: 125 ?G, QD
     Route: 048
  3. LANTUS [Concomitant]
     Active Substance: INSULIN GLARGINE
     Indication: DIABETES MELLITUS
     Dosage: UNK
     Route: 058
     Dates: start: 20161206
  4. SCOPODERM TTS [Suspect]
     Active Substance: SCOPOLAMINE
     Indication: BRONCHIAL OBSTRUCTION
     Dosage: 1 DF, UNK
     Route: 062
     Dates: start: 20200106, end: 20200126
  5. XARELTO [Concomitant]
     Active Substance: RIVAROXABAN
     Indication: ATRIAL FIBRILLATION
     Dosage: 15 MG, QD
     Route: 048
     Dates: start: 20191206

REACTIONS (1)
  - Seizure [Recovered/Resolved]

NARRATIVE: CASE EVENT DATE: 20200108
